FAERS Safety Report 5053583-5 (Version None)
Quarter: 2006Q3

REPORT INFORMATION
  Report Type: 
  Country: None (occurrence: None)
  Receive Date: 20060718
  Receipt Date: 20060711
  Transmission Date: 20061208
  Serious: Yes (Hospitalization)
  Sender: FDA-Public Use
  Company Number: IT-AVENTIS-200613831EU

PATIENT
  Age: 82 Year
  Sex: Female

DRUGS (3)
  1. CLEXANE [Suspect]
     Indication: DEEP VEIN THROMBOSIS
     Route: 058
     Dates: start: 20060520, end: 20060525
  2. DAFLON [Suspect]
     Indication: DEEP VEIN THROMBOSIS
     Route: 048
     Dates: start: 20060520, end: 20060525
  3. VALSARTAN W/ HYDROCHLOROTHIAZIDE [Concomitant]
     Dosage: DOSE: UNKNOWN DOSE

REACTIONS (3)
  - ARTHRALGIA [None]
  - PYREXIA [None]
  - URTICARIA [None]
